FAERS Safety Report 5110851-6 (Version None)
Quarter: 2006Q3

REPORT INFORMATION
  Report Type: 
  Country: None (occurrence: None)
  Receive Date: 20060919
  Receipt Date: 20060906
  Transmission Date: 20061208
  Serious: Yes (Life-Threatening, Hospitalization, Other)
  Sender: FDA-Public Use
  Company Number: 2006108562

PATIENT
  Age: 45 Year
  Sex: Female
  Weight: 56.246 kg

DRUGS (3)
  1. NEURONTIN [Suspect]
     Indication: PAIN
     Dates: start: 20040301, end: 20040101
  2. HYDROCODONE [Concomitant]
  3. ALL OTHER THERAPEUTIC PRODUCTS [Concomitant]

REACTIONS (3)
  - ADVERSE DRUG REACTION [None]
  - SUICIDE ATTEMPT [None]
  - SURGICAL PROCEDURE REPEATED [None]
